FAERS Safety Report 22161223 (Version 2)
Quarter: 2023Q2

REPORT INFORMATION
  Report Type: Report from Study
  Country: US (occurrence: US)
  Receive Date: 20230331
  Receipt Date: 20230405
  Transmission Date: 20230721
  Serious: Yes (Hospitalization)
  Sender: FDA-Public Use
  Company Number: US-SEATTLE GENETICS-2023SGN03231

PATIENT
  Age: 79 Year
  Sex: Female

DRUGS (1)
  1. TUCATINIB [Suspect]
     Active Substance: TUCATINIB
     Indication: Product used for unknown indication
     Dosage: 150 MG
     Route: 065
     Dates: end: 20230329

REACTIONS (4)
  - Asthenia [Unknown]
  - Mobility decreased [Unknown]
  - Aphasia [Unknown]
  - Hospice care [Unknown]

NARRATIVE: CASE EVENT DATE: 20230329
